FAERS Safety Report 8231848-3 (Version None)
Quarter: 2012Q1

REPORT INFORMATION
  Report Type: 
  Country: None (occurrence: None)
  Receive Date: 20120323
  Receipt Date: 20120316
  Transmission Date: 20120608
  Serious: Yes (Death)
  Sender: FDA-Public Use
  Company Number: EC-ROCHE-1049899

PATIENT
  Sex: Female
  Weight: 59.474 kg

DRUGS (1)
  1. BONIVA [Suspect]
     Indication: OSTEOPOROSIS
     Route: 042
     Dates: start: 20100216, end: 20120216

REACTIONS (1)
  - MYOCARDIAL INFARCTION [None]
